FAERS Safety Report 6449925-6 (Version None)
Quarter: 2009Q4

REPORT INFORMATION
  Report Type: 
  Country: None (occurrence: None)
  Receive Date: 20091123
  Receipt Date: 20091118
  Transmission Date: 20100525
  Serious: Yes (Hospitalization)
  Sender: FDA-Public Use
  Company Number: US-BIOGENIDEC-2009BI035835

PATIENT
  Age: 43 Year
  Sex: Male
  Weight: 75 kg

DRUGS (3)
  1. TYSABRI [Suspect]
     Indication: MULTIPLE SCLEROSIS
     Route: 042
     Dates: start: 20070430
  2. PNEUMOVAX 23 [Concomitant]
     Route: 030
  3. IM FLU SHOT [Concomitant]

REACTIONS (5)
  - ANAEMIA [None]
  - GLUCOSE TOLERANCE IMPAIRED [None]
  - H1N1 INFLUENZA [None]
  - MULTIPLE SCLEROSIS RELAPSE [None]
  - PNEUMONIA [None]
